FAERS Safety Report 25064888 (Version 2)
Quarter: 2025Q2

REPORT INFORMATION
  Report Type: Spontaneous
  Country: VN (occurrence: VN)
  Receive Date: 20250311
  Receipt Date: 20250418
  Transmission Date: 20250717
  Serious: Yes (Other)
  Sender: JOHNSON AND JOHNSON
  Company Number: VN-JNJFOC-20250310983

PATIENT
  Age: 24 Year
  Sex: Male

DRUGS (1)
  1. MEBENDAZOLE [Suspect]
     Active Substance: MEBENDAZOLE
     Indication: Taeniasis
     Route: 065

REACTIONS (1)
  - Vascular pain [Recovered/Resolved]
